FAERS Safety Report 7593006-5 (Version None)
Quarter: 2011Q3

REPORT INFORMATION
  Report Type: 
  Country: None (occurrence: None)
  Receive Date: 20110706
  Receipt Date: 20110629
  Transmission Date: 20111222
  Serious: Yes (Hospitalization)
  Sender: FDA-Public Use
  Company Number: FR-VIIV HEALTHCARE LIMITED-B0724181A

PATIENT
  Sex: Male
  Weight: 60 kg

DRUGS (2)
  1. REYATAZ [Concomitant]
     Indication: HIV INFECTION
     Route: 065
     Dates: start: 20110523
  2. ABACAVIR SULFATE AND LAMIVUDINE [Suspect]
     Indication: HIV INFECTION
     Route: 048
     Dates: start: 20110523, end: 20110524

REACTIONS (8)
  - DRUG RASH WITH EOSINOPHILIA AND SYSTEMIC SYMPTOMS [None]
  - COUGH [None]
  - DYSPNOEA [None]
  - RASH GENERALISED [None]
  - SUPERINFECTION [None]
  - PRURITUS [None]
  - RASH PAPULAR [None]
  - ERYTHEMA [None]
